FAERS Safety Report 13039364 (Version 1)
Quarter: 2016Q4

REPORT INFORMATION
  Report Type: Spontaneous
  Country: US (occurrence: US)
  Receive Date: 20161216
  Receipt Date: 20161216
  Transmission Date: 20170207
  Serious: Yes (Life-Threatening)
  Sender: FDA-Public Use
  Company Number: None

PATIENT
  Age: 49 Year
  Sex: Male

DRUGS (1)
  1. AMOXICILLIN. [Suspect]
     Active Substance: AMOXICILLIN
     Indication: DENTAL OPERATION
     Route: 048
     Dates: start: 20161216, end: 20161216

REACTIONS (11)
  - Hypotension [None]
  - Pruritus [None]
  - Nausea [None]
  - Erythema [None]
  - Hypoxia [None]
  - Dyspnoea [None]
  - Throat tightness [None]
  - Hypersensitivity [None]
  - Bradycardia [None]
  - Chest discomfort [None]
  - Lethargy [None]

NARRATIVE: CASE EVENT DATE: 20161216
